FAERS Safety Report 7545355-4 (Version None)
Quarter: 2011Q2

REPORT INFORMATION
  Report Type: 
  Country: None (occurrence: None)
  Receive Date: 20110613
  Receipt Date: 20110613
  Transmission Date: 20111010
  Serious: Yes (Other)
  Sender: FDA-Public Use
  Company Number: None

PATIENT
  Age: 68 Year
  Sex: Male
  Weight: 81.6475 kg

DRUGS (1)
  1. JANUVIA [Suspect]
     Dosage: 1X25 MG DAILY

REACTIONS (2)
  - BACTERIAL INFECTION [None]
  - ANGIOEDEMA [None]
